FAERS Safety Report 8554498-8 (Version None)
Quarter: 2012Q3

REPORT INFORMATION
  Report Type: 
  Country: None (occurrence: None)
  Receive Date: 20120731
  Receipt Date: 20120725
  Transmission Date: 20120928
  Serious: Yes (Other)
  Sender: FDA-Public Use
  Company Number: JP-009507513-1207JPN010154

PATIENT

DRUGS (9)
  1. REBETOL [Suspect]
     Route: 048
     Dates: start: 20120604
  2. CLARITIN REDITABS [Concomitant]
     Indication: PROPHYLAXIS
     Route: 048
  3. NATEGLINIDE [Concomitant]
     Indication: DIABETES MELLITUS
     Route: 048
  4. FEROTYM [Concomitant]
     Indication: IRON DEFICIENCY ANAEMIA
     Route: 048
  5. REBETOL [Suspect]
     Indication: HEPATITIS C
     Route: 048
     Dates: start: 20120515, end: 20120603
  6. TELAVIC [Suspect]
     Indication: HEPATITIS C
     Route: 048
     Dates: start: 20120515
  7. EPADEL S [Concomitant]
     Indication: HYPERLIPIDAEMIA
     Route: 048
  8. PEG-INTRON [Suspect]
     Indication: HEPATITIS C
     Dosage: 1.2MCG/KG/WEEK
     Route: 058
     Dates: start: 20120515
  9. LIVALO [Concomitant]
     Indication: HYPERLIPIDAEMIA
     Route: 048

REACTIONS (2)
  - RASH [None]
  - ANAEMIA [None]
